FAERS Safety Report 16493672 (Version 2)
Quarter: 2019Q3

REPORT INFORMATION
  Report Type: Spontaneous
  Country: US (occurrence: US)
  Receive Date: 20190628
  Receipt Date: 20190723
  Transmission Date: 20191004
  Serious: No
  Sender: FDA-Public Use
  Company Number: US-GALDERMA-US19014923

PATIENT
  Age: 26 Year
  Sex: Female

DRUGS (11)
  1. BIOTIN [Concomitant]
     Active Substance: BIOTIN
  2. PROACTIV MD ADAPALENE ACNE TREATMENT [Suspect]
     Active Substance: ADAPALENE
     Indication: PRODUCT USED FOR UNKNOWN INDICATION
     Dosage: 0.1%
     Route: 061
     Dates: start: 20190301, end: 20190305
  3. PROACTIV GREEN TEA MOISTURIZER [Concomitant]
     Active Substance: COSMETICS
     Route: 061
     Dates: start: 20190301, end: 20190305
  4. PROACTIVPLUS SKIN SMOOTHING EXFOLIATOR [Concomitant]
     Active Substance: BENZOYL PEROXIDE
     Route: 061
     Dates: start: 20190301, end: 20190305
  5. PROACTIV PLUS COMPLEXION PERFECTING HYDRATOR [Concomitant]
     Active Substance: SALICYLIC ACID
     Route: 061
     Dates: start: 20190301, end: 20190305
  6. PROACTIV MD DAILY OIL CONTROL SPF 30 [Suspect]
     Active Substance: AVOBENZONE\OCTISALATE\OCTOCRYLENE
     Indication: PRODUCT USED FOR UNKNOWN INDICATION
     Route: 061
     Dates: start: 20190301, end: 20190305
  7. PROACTIV MD DEEP CLEANSING FACE WASH [Concomitant]
     Active Substance: COSMETICS
     Route: 061
     Dates: start: 20190301, end: 20190305
  8. VITAMIN B12 [Concomitant]
     Active Substance: CYANOCOBALAMIN
  9. CALCIUM [Concomitant]
     Active Substance: CALCIUM
  10. IRON [Concomitant]
     Active Substance: IRON
  11. PROACTIV PLUS PORE TARGETING TREATMENT [Concomitant]
     Active Substance: BENZOYL PEROXIDE
     Route: 061
     Dates: start: 20190301, end: 20190305

REACTIONS (6)
  - Product use in unapproved indication [Recovered/Resolved]
  - Rash erythematous [Recovering/Resolving]
  - Hypersensitivity [Recovering/Resolving]
  - Skin burning sensation [Recovering/Resolving]
  - Condition aggravated [Recovering/Resolving]
  - Skin swelling [Recovering/Resolving]

NARRATIVE: CASE EVENT DATE: 20190301
